FAERS Safety Report 7441017-2 (Version None)
Quarter: 2011Q2

REPORT INFORMATION
  Report Type: 
  Country: None (occurrence: None)
  Receive Date: 20110427
  Receipt Date: 20110418
  Transmission Date: 20111010
  Serious: Yes (Death, Hospitalization, Other)
  Sender: FDA-Public Use
  Company Number: CA-CELGENEUS-028-21880-10123353

PATIENT
  Sex: Female
  Weight: 57.5 kg

DRUGS (56)
  1. REVLIMID [Suspect]
     Indication: MULTIPLE MYELOMA
     Dosage: 15 MILLIGRAM
     Route: 048
     Dates: start: 20071120, end: 20110101
  2. POTASSIUM CHLORIDE [Concomitant]
     Dosage: 40 MILLIGRAM
     Route: 051
     Dates: start: 20101231
  3. FAMOTIDINE [Concomitant]
     Indication: PROPHYLAXIS
  4. FENTANYL [Concomitant]
     Dosage: 25 MICROGRAM
     Route: 051
     Dates: start: 20110215, end: 20110220
  5. ROCURONIUM [Concomitant]
     Route: 065
  6. MULTI-VITAMINS [Concomitant]
     Indication: VITAMIN SUPPLEMENTATION
     Dosage: 5CC
     Route: 048
     Dates: start: 20110114, end: 20110323
  7. ACETYLSALICYLIC ACID SRT [Concomitant]
     Indication: THROMBOSIS PROPHYLAXIS
     Dosage: 81 MILLIGRAM
     Route: 048
     Dates: start: 20110204, end: 20110323
  8. SODIUM BICARBONATE [Concomitant]
     Dosage: 50 MILLIGRAM
     Route: 051
     Dates: start: 20101231
  9. SODIUM PHOSPHATE [Concomitant]
     Dosage: 15 MILLIGRAM
     Route: 051
     Dates: start: 20101231
  10. ACETAMINOPHEN [Concomitant]
     Route: 065
  11. CLONAZEPAM [Concomitant]
     Route: 065
  12. VERSED [Concomitant]
     Route: 065
  13. GANCICLOVIR [Concomitant]
     Dosage: 300 MILLIGRAM
     Route: 051
     Dates: start: 20110220, end: 20110314
  14. VALGANCICLOVIR [Concomitant]
     Indication: VIRAL INFECTION
     Dosage: 900 MILLIGRAM
     Route: 065
     Dates: start: 20110314, end: 20110315
  15. OSELTAMIVIR [Concomitant]
     Indication: INFECTION
     Dosage: 75 MILLIGRAM
     Route: 051
     Dates: start: 20110316, end: 20110323
  16. FLUTICASONE PROPIONATE [Concomitant]
     Indication: INHALATION THERAPY
     Dosage: 250 MICROGRAM
     Route: 055
     Dates: start: 20110318, end: 20110320
  17. VITAMIN K TAB [Concomitant]
     Dosage: 10 MILLIGRAM
     Route: 051
     Dates: start: 20110320, end: 20110320
  18. POTASSIUM [Concomitant]
     Dosage: 15 MILLIGRAM
     Route: 051
     Dates: start: 20101231
  19. FENTANYL [Concomitant]
     Dosage: 25 MICROGRAM
     Route: 051
     Dates: start: 20110320, end: 20110323
  20. VITAMIN D [Concomitant]
     Indication: VITAMIN SUPPLEMENTATION
     Dosage: 800 UNITS
     Route: 065
     Dates: start: 20110211, end: 20110323
  21. MORPHINE [Concomitant]
     Indication: PAIN
     Dosage: 5 MILLIGRAM
     Route: 065
     Dates: start: 20110220, end: 20110318
  22. FERROUS FUMATE [Concomitant]
     Dosage: 300 MILLIGRAM
     Route: 065
     Dates: start: 20110311, end: 20110323
  23. PREDNISONE [Suspect]
     Dosage: 25 MILLIGRAM
     Route: 048
     Dates: start: 20110107
  24. NOREPINEPHRINE BITARTRATE [Concomitant]
     Dosage: 16 MILLIGRAM
     Route: 051
     Dates: start: 20101231
  25. CALCIUM GLUCONATE [Concomitant]
     Dosage: 2 GRAM
     Route: 051
     Dates: start: 20101231
  26. DOCUSATE [Concomitant]
     Route: 065
  27. FENTANYL [Concomitant]
     Indication: AGITATION
     Dosage: 25 MICROGRAM
     Route: 051
     Dates: start: 20110104, end: 20110107
  28. IPRATROPIUM BROMIDE [Concomitant]
     Indication: INHALATION THERAPY
     Dosage: 40 MICROGRAM
     Route: 055
     Dates: start: 20110316, end: 20110323
  29. VASOPRESSIN [Concomitant]
     Indication: BLOOD PRESSURE
     Dosage: 40 UNITS
     Route: 041
     Dates: start: 20110318, end: 20110320
  30. HALOPERIDOL [Concomitant]
     Indication: HALLUCINATION
  31. MAGNESIUM SULFATE [Concomitant]
     Dosage: 2 MILLIGRAM
     Route: 051
     Dates: start: 20101231
  32. HYDROCORTISONE SODIUM [Concomitant]
     Dosage: 50 MILLIGRAM
     Route: 051
     Dates: start: 20101231
  33. PANTOPRAZOLE SODIUM [Concomitant]
     Dosage: 40 MILLIGRAM
     Route: 048
     Dates: start: 20110103
  34. NYSTATIN [Concomitant]
     Dosage: 100,000 UNITS
     Route: 048
     Dates: start: 20110306, end: 20110307
  35. EPOGEN [Concomitant]
     Dosage: 40,000 UNITS
     Route: 058
     Dates: start: 20110309, end: 20110323
  36. HALOPERIDOL [Concomitant]
     Dosage: 2.5-5MG
     Route: 051
     Dates: start: 20110103, end: 20110321
  37. ESOMEPRAZOLE [Concomitant]
     Dosage: 40 MILLIGRAM
     Route: 065
     Dates: start: 20110105, end: 20110323
  38. HEPARIN [Concomitant]
     Indication: PROPHYLAXIS
     Dosage: 5000 UNITS
     Route: 058
     Dates: start: 20110101
  39. PANTOPRAZOLE SODIUM [Concomitant]
     Indication: PROPHYLAXIS
  40. QUETIAPINE [Concomitant]
     Route: 065
  41. FENTANYL [Concomitant]
     Dosage: 25 MICROGRAM
     Route: 051
     Dates: start: 20110114, end: 20110119
  42. PROPOFOL [Concomitant]
     Dosage: 150 MILLIGRAM
     Route: 051
     Dates: start: 20110104, end: 20110222
  43. ENOXAPARIN [Concomitant]
     Indication: ANTICOAGULANT THERAPY
     Dosage: 40 MILLIGRAM
     Route: 058
     Dates: start: 20110310, end: 20110321
  44. ADVAIR DISKUS 100/50 [Concomitant]
     Indication: INHALATION THERAPY
     Dosage: 25/250MCG
     Route: 055
     Dates: start: 20110316, end: 20110323
  45. COTRIM [Concomitant]
     Indication: BACTERIAL INFECTION
     Dosage: 10CC
     Route: 065
     Dates: start: 20110112, end: 20110323
  46. SALBUTAMOL SULFATE [Concomitant]
     Indication: INHALATION THERAPY
     Dosage: 800 MICROGRAM
     Route: 055
     Dates: start: 20110121, end: 20110323
  47. HYDROMORPHONE [Concomitant]
     Indication: PAIN
     Dosage: 50 MILLIGRAM
     Route: 051
     Dates: start: 20110111, end: 20110226
  48. CYCLOPHOSPHAMIDE [Suspect]
     Indication: MULTIPLE MYELOMA
     Dosage: 100 MILLIGRAM/SQ. METER
     Route: 065
     Dates: start: 20071120, end: 20101231
  49. FAMOTIDINE [Concomitant]
     Dosage: 20 MILLIGRAM
     Route: 051
     Dates: start: 20101231, end: 20110103
  50. MUCOSITIS MOUTHWASH [Concomitant]
     Dosage: 15CC
     Route: 048
     Dates: start: 20110107, end: 20110206
  51. ZOPICLONE [Concomitant]
     Indication: SEDATION
     Dosage: 3.75-7.5MG
     Route: 065
     Dates: start: 20110303, end: 20110323
  52. VORICONAZOLE [Concomitant]
     Indication: FUNGAL INFECTION
     Dosage: 240 MILLIGRAM
     Route: 051
     Dates: start: 20110126, end: 20110323
  53. FUROSEMIDE [Concomitant]
     Dosage: 40 MILLIGRAM
     Route: 051
     Dates: start: 20110318, end: 20110318
  54. TAZOCIN [Concomitant]
     Indication: INFECTION
     Dosage: 3.375 GRAM
     Route: 051
     Dates: start: 20110220, end: 20110323
  55. PREDNISONE [Suspect]
     Indication: MULTIPLE MYELOMA
     Dosage: 50 MILLIGRAM
     Route: 065
     Dates: start: 20071120, end: 20101231
  56. MIDAZOLAM [Concomitant]
     Indication: SEDATION
     Dosage: 5 MILLIGRAM
     Route: 051
     Dates: start: 20110321, end: 20110323

REACTIONS (3)
  - RENAL FAILURE ACUTE [None]
  - PNEUMONIA STREPTOCOCCAL [None]
  - ATRIAL FIBRILLATION [None]
